FAERS Safety Report 4585737-6 (Version None)
Quarter: 2005Q1

REPORT INFORMATION
  Report Type: 
  Country: None (occurrence: None)
  Receive Date: 20050214
  Receipt Date: 20041018
  Transmission Date: 20050727
  Serious: Yes (Hospitalization)
  Sender: FDA-Public Use
  Company Number: 05-101

PATIENT
  Age: 56 Year
  Sex: Female

DRUGS (11)
  1. DEXAMETHASONE [Suspect]
     Indication: MULTIPLE MYELOMA
     Dosage: 40 MG/DAY, ORAL
     Route: 048
     Dates: start: 20010823, end: 20010923
  2. PAMIDRONATE DISODIUM [Concomitant]
  3. DAPSONE [Concomitant]
  4. FENTANYL [Concomitant]
  5. HYDROCODONE [Concomitant]
  6. FAMOTIDINE [Concomitant]
  7. CONJUGATED ESTROGENS/MEDROXYPROGESTERONE [Concomitant]
  8. MULTI-VITAMIN [Concomitant]
  9. VITAMIN E [Concomitant]
  10. SENNA [Concomitant]
  11. COCUSATE SODIUM [Concomitant]

REACTIONS (10)
  - DIPLOPIA [None]
  - EXTRAOCULAR MUSCLE PARESIS [None]
  - FATIGUE [None]
  - HYPOAESTHESIA [None]
  - MYALGIA [None]
  - NAUSEA [None]
  - ORAL INTAKE REDUCED [None]
  - PATHOLOGICAL FRACTURE [None]
  - UPPER LIMB FRACTURE [None]
  - VOMITING [None]
